FAERS Safety Report 13421788 (Version 1)
Quarter: 2017Q2

REPORT INFORMATION
  Report Type: Report from Study
  Country: DE (occurrence: DE)
  Receive Date: 20170410
  Receipt Date: 20170410
  Transmission Date: 20170830
  Serious: Yes (Hospitalization)
  Sender: FDA-Public Use
  Company Number: DE-ROCHE-1865062

PATIENT
  Sex: Female

DRUGS (21)
  1. METHOTREXATE. [Suspect]
     Active Substance: METHOTREXATE
     Indication: RHEUMATOID ARTHRITIS
     Route: 065
  2. HYDROXYCHLOROQUINE [Concomitant]
     Active Substance: HYDROXYCHLOROQUINE
     Indication: RHEUMATOID ARTHRITIS
  3. BECLOMETASONE/FORMOTEROL [Concomitant]
  4. NEBIVOLOL. [Concomitant]
     Active Substance: NEBIVOLOL
  5. AMLODIPIN [Concomitant]
     Active Substance: AMLODIPINE BESYLATE
  6. IBUPROFEN. [Concomitant]
     Active Substance: IBUPROFEN
  7. AMITRIPTYLIN [Concomitant]
     Active Substance: AMITRIPTYLINE
  8. FOLIC ACID. [Concomitant]
     Active Substance: FOLIC ACID
  9. TOCILIZUMAB [Suspect]
     Active Substance: TOCILIZUMAB
     Indication: RHEUMATOID ARTHRITIS
     Route: 058
  10. SULFASALAZINE DELAYED-RELEASE [Concomitant]
     Active Substance: SULFASALAZINE
     Indication: RHEUMATOID ARTHRITIS
  11. ATORVASTATIN [Concomitant]
     Active Substance: ATORVASTATIN
  12. THYRONAJOD [Concomitant]
     Active Substance: LEVOTHYROXINE SODIUM\POTASSIUM IODIDE
  13. ASPIRIN. [Concomitant]
     Active Substance: ASPIRIN
  14. HYDROCHLOROTHIAZIDE. [Concomitant]
     Active Substance: HYDROCHLOROTHIAZIDE
  15. PANTOPRAZOL [Concomitant]
     Active Substance: PANTOPRAZOLE SODIUM
  16. PREDNISOLON [Concomitant]
     Active Substance: PREDNISOLONE
  17. LOSARTAN. [Concomitant]
     Active Substance: LOSARTAN
  18. DEKRISTOL [Concomitant]
     Active Substance: CHOLECALCIFEROL
  19. SALBUTAMOL [Concomitant]
     Active Substance: ALBUTEROL
  20. RITUXIMAB [Suspect]
     Active Substance: RITUXIMAB
     Indication: RHEUMATOID ARTHRITIS
     Route: 065
  21. ARCOXIA [Concomitant]
     Active Substance: ETORICOXIB

REACTIONS (3)
  - Bronchitis [Recovered/Resolved]
  - Bronchitis [Unknown]
  - Chronic obstructive pulmonary disease [Unknown]

NARRATIVE: CASE EVENT DATE: 20160315
